FAERS Safety Report 6219583-4 (Version None)
Quarter: 2009Q2

REPORT INFORMATION
  Report Type: 
  Country: None (occurrence: None)
  Receive Date: 20090609
  Receipt Date: 20090529
  Transmission Date: 20091009
  Serious: Yes (Congenital Anomaly)
  Sender: FDA-Public Use
  Company Number: CH-BAYER-200922158GPV

PATIENT

DRUGS (3)
  1. MINOCYCLINE HCL [Suspect]
     Indication: ACNE
     Route: 064
     Dates: start: 20081116, end: 20081122
  2. SKINOREN [Suspect]
     Indication: ACNE
     Route: 064
     Dates: start: 20081116, end: 20081122
  3. DIFFERIN [Suspect]
     Indication: ACNE
     Route: 064
     Dates: start: 20081116, end: 20081122

REACTIONS (2)
  - ADACTYLY [None]
  - CONGENITAL HAND MALFORMATION [None]
